FAERS Safety Report 25912551 (Version 2)
Quarter: 2025Q4

REPORT INFORMATION
  Report Type: Spontaneous
  Country: EU (occurrence: EU)
  Receive Date: 20251013
  Receipt Date: 20251016
  Transmission Date: 20260117
  Serious: Yes (Other)
  Sender: AUROBINDO
  Company Number: EU-BAUSCH-BH-2025-017960

PATIENT
  Age: 62 Year
  Sex: Male

DRUGS (3)
  1. ALLOPURINOL [Suspect]
     Active Substance: ALLOPURINOL
     Indication: Gouty tophus
     Dosage: UNK
     Route: 065
  2. COLCHICINE [Concomitant]
     Active Substance: COLCHICINE
     Indication: Gouty tophus
     Dosage: UNK
     Route: 065
  3. DICLOFENAC [Concomitant]
     Active Substance: DICLOFENAC
     Indication: Gouty tophus
     Dosage: UNK
     Route: 065

REACTIONS (2)
  - Therapy non-responder [Unknown]
  - Drug ineffective [Unknown]
